FAERS Safety Report 11864540 (Version 4)
Quarter: 2016Q1

REPORT INFORMATION
  Report Type: Spontaneous
  Country: AT (occurrence: AT)
  Receive Date: 20151223
  Receipt Date: 20160118
  Transmission Date: 20160526
  Serious: Yes (Death, Hospitalization)
  Sender: FDA-Public Use
  Company Number: AT-ABBVIE-15P-009-1524589-00

PATIENT
  Age: 76 Year
  Sex: Male

DRUGS (6)
  1. LYRICA [Concomitant]
     Active Substance: PREGABALIN
     Indication: DEPRESSION
     Dosage: 300 MG / DIE
     Route: 048
     Dates: start: 2013
  2. DUODOPA [Suspect]
     Active Substance: CARBIDOPA\LEVODOPA
     Dosage: 5 ML/H: 70 ML/DIE
     Route: 050
     Dates: end: 20151223
  3. KEPPRA [Concomitant]
     Active Substance: LEVETIRACETAM
     Indication: EPILEPSY
     Dosage: 300 MG / DIE
     Route: 048
     Dates: start: 20151218
  4. DUODOPA [Suspect]
     Active Substance: CARBIDOPA\LEVODOPA
     Indication: PARKINSON^S DISEASE
     Dosage: 24-HOUR THERAPY:MD: 6 ML, CR: 5.6 ML/H (OVER 24 HOURS), ED: 3.6 ML
     Route: 050
     Dates: start: 20100719
  5. EXELON [Concomitant]
     Active Substance: RIVASTIGMINE TARTRATE
     Indication: DEMENTIA
     Dates: start: 20150101
  6. DEPAKINE [Concomitant]
     Active Substance: VALPROATE SODIUM
     Indication: EPILEPSY
     Dosage: 100 MG / DIE
     Route: 048
     Dates: start: 20151220

REACTIONS (9)
  - Delirium [Fatal]
  - Dizziness [Unknown]
  - Epilepsy [Recovered/Resolved]
  - Muscular weakness [Unknown]
  - C-reactive protein increased [Unknown]
  - Pneumonia [Unknown]
  - Device connection issue [Unknown]
  - Cardiac failure [Fatal]
  - Clostridium difficile colitis [Unknown]

NARRATIVE: CASE EVENT DATE: 20151213
